FAERS Safety Report 4446633-8 (Version None)
Quarter: 2004Q3

REPORT INFORMATION
  Report Type: 
  Country: None (occurrence: None)
  Receive Date: 20040908
  Receipt Date: 20040820
  Transmission Date: 20050211
  Serious: Yes (Other)
  Sender: FDA-Public Use
  Company Number: 2004052750

PATIENT
  Age: 67 Year
  Sex: Male

DRUGS (5)
  1. LIPITOR [Suspect]
     Indication: HYPERLIPIDAEMIA
     Dosage: 5 MG (1 IN 1 D), ORAL
     Route: 048
     Dates: start: 20040325, end: 20040625
  2. ASPIRIN [Concomitant]
  3. LISINOPRIL [Concomitant]
  4. DILTIAZEM HYDROCHLORIDE [Concomitant]
  5. BROTIZOLAM (BROTIZOLAM) [Concomitant]

REACTIONS (3)
  - HEPATIC FUNCTION ABNORMAL [None]
  - HYPERTRIGLYCERIDAEMIA [None]
  - HYPOCHOLESTEROLAEMIA [None]
